FAERS Safety Report 18508755 (Version 2)
Quarter: 2021Q1

REPORT INFORMATION
  Report Type: Other
  Country: CA (occurrence: CA)
  Receive Date: 20201117
  Receipt Date: 20210209
  Transmission Date: 20210419
  Serious: Yes (Hospitalization, Other)
  Sender: FDA-Public Use
  Company Number: CA-CELLTRION INC.-2020CA031229

PATIENT

DRUGS (14)
  1. BISOPROLOL [Concomitant]
     Active Substance: BISOPROLOL
  2. PREGABALIN. [Concomitant]
     Active Substance: PREGABALIN
  3. RITUXIMAB (UNKNOWN) [Suspect]
     Active Substance: RITUXIMAB
     Route: 042
  4. EZETIMIBE. [Concomitant]
     Active Substance: EZETIMIBE
  5. PRAVASTATIN. [Concomitant]
     Active Substance: PRAVASTATIN
  6. FLOVENT [Concomitant]
     Active Substance: FLUTICASONE PROPIONATE
  7. FOLIC ACID. [Concomitant]
     Active Substance: FOLIC ACID
  8. NITROGLYCERIN. [Concomitant]
     Active Substance: NITROGLYCERIN
  9. DOCUSATE [Concomitant]
     Active Substance: DOCUSATE
  10. METHOTREXATE. [Concomitant]
     Active Substance: METHOTREXATE
     Route: 048
  11. VENTOLIN [Concomitant]
     Active Substance: ALBUTEROL SULFATE
  12. RITUXIMAB (UNKNOWN) [Suspect]
     Active Substance: RITUXIMAB
     Indication: RHEUMATOID ARTHRITIS
     Route: 042
  13. DESOXIMETASONE. [Concomitant]
     Active Substance: DESOXIMETASONE
  14. ELIQUIS [Concomitant]
     Active Substance: APIXABAN

REACTIONS (6)
  - Skin fragility [Not Recovered/Not Resolved]
  - Infection [Not Recovered/Not Resolved]
  - Wound infection [Not Recovered/Not Resolved]
  - Pneumonia [Not Recovered/Not Resolved]
  - Drug ineffective [Not Recovered/Not Resolved]
  - Psoriasis [Not Recovered/Not Resolved]
